FAERS Safety Report 10270179 (Version 1)
Quarter: 2014Q2

REPORT INFORMATION
  Report Type: Spontaneous
  Country: TR (occurrence: None)
  Receive Date: 20140625
  Receipt Date: 20140625
  Transmission Date: 20141212
  Serious: Yes (Death, Hospitalization)
  Sender: FDA-Public Use
  Company Number: FK201402448

PATIENT
  Age: 66 Year
  Sex: Male

DRUGS (3)
  1. FLUOROURACIL [Suspect]
     Indication: COLON CANCER METASTATIC
  2. LEUCOVORIN CALCIUM [Suspect]
     Indication: COLON CANCER METASTATIC
  3. IRINOTECAN [Suspect]
     Indication: COLON CANCER METASTATIC

REACTIONS (7)
  - Tumour lysis syndrome [None]
  - Anaemia [None]
  - Hypoalbuminaemia [None]
  - Haemodialysis [None]
  - Renal failure acute [None]
  - Cardiac arrest [None]
  - Metabolic acidosis [None]
